FAERS Safety Report 22014821 (Version 1)
Quarter: 2023Q1

REPORT INFORMATION
  Report Type: Report from Study
  Country: US (occurrence: US)
  Receive Date: 20230221
  Receipt Date: 20230221
  Transmission Date: 20230418
  Serious: Yes (Other)
  Sender: FDA-Public Use
  Company Number: US-ABBVIE-4311137

PATIENT
  Age: 36 Year
  Sex: Female

DRUGS (2)
  1. SKYRIZI [Suspect]
     Active Substance: RISANKIZUMAB-RZAA
     Indication: Product used for unknown indication
     Dosage: WEEK 8.
     Route: 058
     Dates: start: 202210
  2. SKYRIZI [Suspect]
     Active Substance: RISANKIZUMAB-RZAA
     Dosage: 3RD INFUSION
     Route: 042
     Dates: start: 20230104

REACTIONS (9)
  - Ileostomy [Unknown]
  - Influenza [Unknown]
  - Abdominal distension [Unknown]
  - Abdominal pain [Unknown]
  - Arthralgia [Unknown]
  - Insomnia [Unknown]
  - Frequent bowel movements [Unknown]
  - Off label use [Unknown]
  - Gastrointestinal sounds abnormal [Unknown]

NARRATIVE: CASE EVENT DATE: 20221201
